FAERS Safety Report 4731522-1 (Version None)
Quarter: 2005Q3

REPORT INFORMATION
  Report Type: 
  Country: None (occurrence: None)
  Receive Date: 20050721
  Receipt Date: 20050603
  Transmission Date: 20060218
  Serious: Yes (Other)
  Sender: FDA-Public Use
  Company Number: 2004027486

PATIENT
  Age: 47 Year
  Sex: Female

DRUGS (4)
  1. RELPAX [Suspect]
     Indication: MIGRAINE
     Dosage: 40 MG (40 MG), ORAL
     Route: 048
     Dates: start: 20040331
  2. MULTIVITAMIN [Concomitant]
  3. OSCAL 500-D (CALCIUM, COLECALCIFEROL) [Concomitant]
  4. ALL OTHER THERAPEUTIC PRODUCTS [Concomitant]

REACTIONS (3)
  - DIZZINESS [None]
  - PAIN [None]
  - SYNCOPE [None]
